FAERS Safety Report 18446509 (Version 1)
Quarter: 2020Q4

REPORT INFORMATION
  Report Type: Spontaneous
  Country: US (occurrence: US)
  Receive Date: 20201030
  Receipt Date: 20201030
  Transmission Date: 20210114
  Serious: Yes (Life-Threatening, Hospitalization)
  Sender: FDA-Public Use
  Company Number: US-AMNEAL PHARMACEUTICALS-2020-AMRX-03384

PATIENT
  Age: 51 Year
  Sex: Female

DRUGS (1)
  1. CYCLOBENZAPRINE HYDROCHLORIDE. [Suspect]
     Active Substance: CYCLOBENZAPRINE HYDROCHLORIDE
     Indication: SUICIDE ATTEMPT
     Dosage: UNK
     Route: 065

REACTIONS (9)
  - Multiple organ dysfunction syndrome [Unknown]
  - Metabolic acidosis [Unknown]
  - Rhabdomyolysis [Unknown]
  - Acute kidney injury [Recovered/Resolved]
  - Metabolic encephalopathy [Unknown]
  - Respiratory failure [Unknown]
  - Hepatic enzyme increased [Recovered/Resolved]
  - Distributive shock [Unknown]
  - Overdose [Unknown]
